FAERS Safety Report 13449207 (Version 1)
Quarter: 2017Q2

REPORT INFORMATION
  Report Type: Spontaneous
  Country: IT (occurrence: IT)
  Receive Date: 20170417
  Receipt Date: 20170417
  Transmission Date: 20170830
  Serious: Yes (Life-Threatening)
  Sender: FDA-Public Use
  Company Number: IT-MYLANLABS-2017M1022935

PATIENT

DRUGS (4)
  1. CEFTRIAXONE. [Suspect]
     Active Substance: CEFTRIAXONE
     Indication: KLEBSIELLA BACTERAEMIA
  2. VANCOMYCIN [Suspect]
     Active Substance: VANCOMYCIN
     Indication: ESCHERICHIA BACTERAEMIA
  3. VANCOMYCIN [Suspect]
     Active Substance: VANCOMYCIN
     Indication: KLEBSIELLA BACTERAEMIA
     Dosage: 500 MG, QID
     Route: 042
  4. CEFTRIAXONE. [Suspect]
     Active Substance: CEFTRIAXONE
     Indication: ESCHERICHIA BACTERAEMIA
     Dosage: 2 G, BID
     Route: 042

REACTIONS (1)
  - Drug resistance [Unknown]
